FAERS Safety Report 8974205 (Version 1)
Quarter: 2012Q4

REPORT INFORMATION
  Report Type: Spontaneous
  Country: US (occurrence: None)
  Receive Date: 20121214
  Receipt Date: 20121214
  Transmission Date: 20130627
  Serious: Yes (Hospitalization, Other)
  Sender: FDA-Public Use
  Company Number: 1514506

PATIENT
  Age: 58 Year
  Sex: Female
  Weight: 105 kg

DRUGS (4)
  1. CALCIUM FOLINATE [Suspect]
     Indication: DRUG USE FOR UNKNOWN INDICATION
     Dosage: 400 mg/m2,  Every cycle,  UNKNOWN,  Intravenous
UNKNOWN  -  10/31/2012
     Route: 042
     Dates: end: 20121031
  2. OXALIPLATIN [Suspect]
     Indication: DRUG USE FOR UNKNOWN INDICATION
     Dosage: 85 mg/m2,  Not reported,  UNKNOWN,  Intravenous
UNKNOWN -  10/31/2012
     Route: 042
     Dates: end: 20121031
  3. 5-FLUOROURACIL [Suspect]
     Indication: DRUG USE FOR UNKNOWN INDICATION
     Dosage: Not reported,  Not reported,  UNKNOWN
UNKNOWN  -  10/31/2012
     Dates: end: 20121031
  4. (INVESTIGATIONAL DRUG) [Suspect]
     Indication: DRUG USE FOR UNKNOWN INDICATION
     Dosage: Not reported,  Not reported,  UNKNOWN
UNKNOWN  -  10/31/2012
     Dates: end: 20121031

REACTIONS (3)
  - Road traffic accident [None]
  - Subdural haemorrhage [None]
  - Injury [None]
